FAERS Safety Report 5171935-X (Version None)
Quarter: 2006Q4

REPORT INFORMATION
  Report Type: 
  Country: None (occurrence: None)
  Receive Date: 20061205
  Receipt Date: 20061120
  Transmission Date: 20070319
  Serious: Yes (Disabling)
  Sender: FDA-Public Use
  Company Number: US-GDP-0613787

PATIENT
  Age: 53 Year
  Sex: Male
  Weight: 74.8435 kg

DRUGS (1)
  1. METROGEL [Suspect]
     Indication: ROSACEA
     Dosage: 1 APP BID TP
     Route: 061
     Dates: start: 20061025, end: 20061027

REACTIONS (7)
  - FACE OEDEMA [None]
  - IMPAIRED WORK ABILITY [None]
  - INFLAMMATION [None]
  - RASH [None]
  - REACTION TO DRUG EXCIPIENTS [None]
  - SKIN BURNING SENSATION [None]
  - URTICARIA [None]
